FAERS Safety Report 9944087 (Version 2)
Quarter: 2014Q1

REPORT INFORMATION
  Report Type: Report from Study
  Country: IE (occurrence: IE)
  Receive Date: 20140303
  Receipt Date: 20140303
  Transmission Date: 20141002
  Serious: Yes (Hospitalization, Other)
  Sender: FDA-Public Use
  Company Number: IE-ABBVIE-13P-229-1165428-00

PATIENT
  Age: 57 Year
  Sex: Female

DRUGS (16)
  1. HUMIRA [Suspect]
     Indication: CROHN^S DISEASE
     Route: 058
     Dates: start: 20120531, end: 20120531
  2. HUMIRA [Suspect]
     Route: 058
  3. HUMIRA [Suspect]
     Route: 058
  4. ARTELEC [Concomitant]
     Indication: PRODUCT USED FOR UNKNOWN INDICATION
  5. DOMERID [Concomitant]
     Indication: PRODUCT USED FOR UNKNOWN INDICATION
  6. ISTIN [Concomitant]
     Indication: PRODUCT USED FOR UNKNOWN INDICATION
  7. TRANSIDERM [Concomitant]
     Indication: PRODUCT USED FOR UNKNOWN INDICATION
  8. NITRO [Concomitant]
     Indication: PRODUCT USED FOR UNKNOWN INDICATION
  9. CALCICHEW [Concomitant]
     Indication: PRODUCT USED FOR UNKNOWN INDICATION
  10. PENTASA [Concomitant]
     Indication: PRODUCT USED FOR UNKNOWN INDICATION
  11. AMACOR [Concomitant]
     Indication: PRODUCT USED FOR UNKNOWN INDICATION
  12. CLONFOLIC [Concomitant]
     Indication: PRODUCT USED FOR UNKNOWN INDICATION
  13. NU SEALS [Concomitant]
     Indication: PRODUCT USED FOR UNKNOWN INDICATION
  14. ASPIRIN [Concomitant]
     Indication: PRODUCT USED FOR UNKNOWN INDICATION
  15. CARDICOR [Concomitant]
     Indication: PRODUCT USED FOR UNKNOWN INDICATION
  16. IMURAN [Concomitant]
     Indication: PRODUCT USED FOR UNKNOWN INDICATION

REACTIONS (3)
  - Post procedural complication [Recovering/Resolving]
  - Intestinal resection [Recovering/Resolving]
  - Abscess [Recovering/Resolving]
